FAERS Safety Report 21208869 (Version 5)
Quarter: 2022Q4

REPORT INFORMATION
  Report Type: Report from Study
  Country: US (occurrence: US)
  Receive Date: 20220812
  Receipt Date: 20221109
  Transmission Date: 20230113
  Serious: No
  Sender: FDA-Public Use
  Company Number: US-NOVARTISTESTPH-NVSC2022US182616

PATIENT
  Age: 6 Year
  Sex: Male

DRUGS (1)
  1. OMNITROPE [Suspect]
     Active Substance: SOMATROPIN
     Indication: Hypopituitarism
     Dosage: 0.8 MG, QD
     Route: 058
     Dates: start: 20220519

REACTIONS (6)
  - Injection site haemorrhage [Recovered/Resolved]
  - Injection site pain [Unknown]
  - Device colour issue [Unknown]
  - Needle issue [Unknown]
  - Product storage error [Unknown]
  - Wrong technique in product usage process [Unknown]

NARRATIVE: CASE EVENT DATE: 20220809
